FAERS Safety Report 13759801 (Version 1)
Quarter: 2017Q3

REPORT INFORMATION
  Report Type: Spontaneous
  Country: US (occurrence: US)
  Receive Date: 20170717
  Receipt Date: 20170717
  Transmission Date: 20171127
  Serious: No
  Sender: FDA-Public Use
  Company Number: US-SHIRE-US201714412

PATIENT
  Sex: Female
  Weight: 57.14 kg

DRUGS (1)
  1. ADDERALL XR [Suspect]
     Active Substance: AMPHETAMINE ASPARTATE\AMPHETAMINE SULFATE\DEXTROAMPHETAMINE SACCHARATE\DEXTROAMPHETAMINE SULFATE
     Indication: PSYCHOMOTOR HYPERACTIVITY
     Dosage: 30 MG, 1X/DAY:QD
     Route: 048

REACTIONS (6)
  - Drug tolerance [Not Recovered/Not Resolved]
  - Drug effect decreased [Not Recovered/Not Resolved]
  - Impatience [Not Recovered/Not Resolved]
  - Menopause [Not Recovered/Not Resolved]
  - Weight increased [Not Recovered/Not Resolved]
  - Product quality issue [Unknown]
